FAERS Safety Report 6875617-5 (Version None)
Quarter: 2010Q3

REPORT INFORMATION
  Report Type: 
  Country: None (occurrence: None)
  Receive Date: 20100727
  Receipt Date: 20100716
  Transmission Date: 20110219
  Serious: Yes (Other)
  Sender: FDA-Public Use
  Company Number: CO-JNJFOC-20100705336

PATIENT
  Age: 63 Year
  Sex: Female

DRUGS (6)
  1. REMICADE [Suspect]
     Indication: RHEUMATOID ARTHRITIS
     Route: 042
  2. PREDNISOLONE [Concomitant]
  3. ACETAMINOPHEN [Concomitant]
  4. CLONIXIN LYSINATE [Concomitant]
  5. CALCITRIOL [Concomitant]
  6. ARAVA [Concomitant]

REACTIONS (2)
  - PHARYNGITIS [None]
  - TUBERCULOSIS [None]
